FAERS Safety Report 7729403-4 (Version None)
Quarter: 2011Q3

REPORT INFORMATION
  Report Type: 
  Country: None (occurrence: None)
  Receive Date: 20110906
  Receipt Date: 20110825
  Transmission Date: 20111222
  Serious: Yes (Hospitalization)
  Sender: FDA-Public Use
  Company Number: DE-JNJFOC-20110711795

PATIENT
  Age: 68 Year
  Sex: Male

DRUGS (7)
  1. LACOSAMIDE [Concomitant]
     Route: 065
  2. VALPROATE SODIUM [Concomitant]
     Route: 065
  3. TRAZODON [Concomitant]
     Route: 065
  4. FRISIUM [Concomitant]
     Route: 065
  5. AMLODIPINE [Concomitant]
     Route: 065
  6. HALOPERIDOL DECANOATE [Suspect]
     Indication: PSYCHOTIC DISORDER DUE TO A GENERAL MEDICAL CONDITION
     Route: 042
  7. LEVETIRACETAM [Concomitant]
     Route: 065

REACTIONS (1)
  - DRUG ADMINISTRATION ERROR [None]
